FAERS Safety Report 15538244 (Version 5)
Quarter: 2018Q4

REPORT INFORMATION
  Report Type: Spontaneous
  Country: NL (occurrence: NL)
  Receive Date: 20181022
  Receipt Date: 20181226
  Transmission Date: 20190205
  Serious: Yes (Other)
  Sender: FDA-Public Use
  Company Number: NL-PFIZER INC-2018422423

PATIENT
  Age: 46 Year
  Sex: Male

DRUGS (6)
  1. DASATINIB. [Suspect]
     Active Substance: DASATINIB
     Dosage: 100 MG, 1X/DAY
     Route: 048
  2. DASATINIB. [Suspect]
     Active Substance: DASATINIB
     Dosage: 70 MG, 1X/DAY
  3. DASATINIB. [Suspect]
     Active Substance: DASATINIB
     Indication: CHRONIC MYELOID LEUKAEMIA
     Dosage: 140 MG, 1X/DAY
     Route: 048
  4. DASATINIB. [Suspect]
     Active Substance: DASATINIB
     Dosage: 180 MG, 1X/DAY
     Route: 048
  5. DEXAMETHASONE. [Suspect]
     Active Substance: DEXAMETHASONE
     Indication: CHRONIC MYELOID LEUKAEMIA
     Dosage: UNK
     Route: 048
  6. CYTARABINE. [Suspect]
     Active Substance: CYTARABINE
     Indication: CHRONIC MYELOID LEUKAEMIA
     Dosage: UNK
     Route: 037

REACTIONS (4)
  - Neoplasm progression [Unknown]
  - Arteriospasm coronary [Unknown]
  - Pleural effusion [Recovered/Resolved]
  - Acute myocardial infarction [Unknown]

NARRATIVE: CASE EVENT DATE: 201402
